FAERS Safety Report 8119137 (Version 7)
Quarter: 2014Q2

REPORT INFORMATION
  Report Type: Spontaneous
  Country: US (occurrence: US)
  Receive Date: 20110902
  Receipt Date: 20140603
  Transmission Date: 20141212
  Serious: Yes (Hospitalization)
  Sender: FDA-Public Use
  Company Number: US-GLAXOSMITHKLINE-A0891004A

PATIENT
  Age: 58 Year
  Sex: Male
  Weight: 93.6 kg

DRUGS (9)
  1. AVANDIA [Suspect]
     Indication: DIABETES MELLITUS
     Dosage: 4MG TWICE PER DAY
     Route: 048
     Dates: start: 199910, end: 200509
  2. AMARYL [Concomitant]
  3. WELLBUTRIN [Concomitant]
  4. ZOCOR [Concomitant]
  5. LISINOPRIL [Concomitant]
  6. NEURONTIN [Concomitant]
  7. CAPOTEN [Concomitant]
  8. INSULIN [Concomitant]
  9. PAXIL [Concomitant]

REACTIONS (2)
  - Myocardial ischaemia [Unknown]
  - Coronary artery disease [Unknown]
